FAERS Safety Report 16831858 (Version 6)
Quarter: 2022Q4

REPORT INFORMATION
  Report Type: Report from Study
  Country: GB (occurrence: GB)
  Receive Date: 20190920
  Receipt Date: 20221025
  Transmission Date: 20230113
  Serious: Yes (Hospitalization)
  Sender: FDA-Public Use
  Company Number: PHHO2019GB008825

PATIENT
  Age: 50 Year
  Sex: Female

DRUGS (7)
  1. CANAKINUMAB [Suspect]
     Active Substance: CANAKINUMAB
     Indication: Metastatic malignant melanoma
     Dosage: 300 MG, Q4W
     Route: 058
     Dates: start: 20190710, end: 20190807
  2. SPARTALIZUMAB [Suspect]
     Active Substance: SPARTALIZUMAB
     Indication: Metastatic malignant melanoma
     Dosage: 400 MG, Q4W
     Route: 042
     Dates: start: 20190710, end: 20190807
  3. SENNA [Concomitant]
     Active Substance: SENNA LEAF\SENNOSIDES\SENNOSIDES A AND B
     Indication: Constipation
     Dosage: UNK
     Route: 065
     Dates: start: 20190717
  4. ALBUTEROL [Concomitant]
     Active Substance: ALBUTEROL
     Indication: Dyspnoea
     Dosage: UNK
     Route: 065
     Dates: start: 201804
  5. ZOPICLONE [Concomitant]
     Active Substance: ZOPICLONE
     Indication: Insomnia
     Dosage: UNK
     Route: 065
     Dates: start: 20190801
  6. CODEINE [Concomitant]
     Active Substance: CODEINE
     Indication: Pain in extremity
     Dosage: UNK
     Route: 065
     Dates: start: 20190712, end: 20190717
  7. CODEINE [Concomitant]
     Active Substance: CODEINE
     Dosage: UNK
     Route: 065
     Dates: start: 20190717, end: 20190724

REACTIONS (2)
  - Nausea [Recovered/Resolved]
  - Pain in extremity [Recovered/Resolved]

NARRATIVE: CASE EVENT DATE: 20190801
